FAERS Safety Report 16790825 (Version 1)
Quarter: 2019Q3

REPORT INFORMATION
  Report Type: Spontaneous
  Country: US (occurrence: US)
  Receive Date: 20190802
  Receipt Date: 20190802
  Transmission Date: 20191005
  Serious: No
  Sender: FDA-Public Use
  Company Number: None

PATIENT

DRUGS (2)
  1. SODIUM PHOSPHATE [Suspect]
     Active Substance: SODIUM PHOSPHATE
  2. POTASSIUM ACETATE. [Suspect]
     Active Substance: POTASSIUM ACETATE

REACTIONS (3)
  - Incorrect dose administered [None]
  - Product preparation error [None]
  - Wrong technique in device usage process [None]
